FAERS Safety Report 18022197 (Version 5)
Quarter: 2021Q1

REPORT INFORMATION
  Report Type: Report from Study
  Country: None (occurrence: SE)
  Receive Date: 20200715
  Receipt Date: 20210224
  Transmission Date: 20210419
  Serious: Yes (Other)
  Sender: FDA-Public Use
  Company Number: SE-ABBVIE-20K-150-3480734-00

PATIENT
  Age: 73 Year
  Sex: Female
  Weight: 50 kg

DRUGS (3)
  1. CORTIMYK [Suspect]
     Active Substance: HYDROCORTISONE\MICONAZOLE NITRATE
     Indication: PRODUCT USED FOR UNKNOWN INDICATION
     Route: 065
     Dates: end: 2020
  2. DUODOPA [Suspect]
     Active Substance: CARBIDOPA\LEVODOPA
     Indication: PARKINSON^S DISEASE
     Route: 050
     Dates: start: 20180115, end: 2018
  3. DUODOPA [Suspect]
     Active Substance: CARBIDOPA\LEVODOPA
     Dosage: REMAINS AT 16H
     Route: 050
     Dates: start: 20180212, end: 202101

REACTIONS (12)
  - Wound [Not Recovered/Not Resolved]
  - Gastrointestinal injury [Not Recovered/Not Resolved]
  - Stoma site reaction [Not Recovered/Not Resolved]
  - Stoma site discomfort [Unknown]
  - Device occlusion [Unknown]
  - Device dislocation [Unknown]
  - Stoma site erythema [Not Recovered/Not Resolved]
  - Stoma complication [Recovering/Resolving]
  - Discomfort [Unknown]
  - Stoma site infection [Recovered/Resolved]
  - Stoma site discharge [Unknown]
  - Stoma site infection [Unknown]

NARRATIVE: CASE EVENT DATE: 20200713
